FAERS Safety Report 16759385 (Version 2)
Quarter: 2019Q3

REPORT INFORMATION
  Report Type: Spontaneous
  Country: BE (occurrence: BE)
  Receive Date: 20190830
  Receipt Date: 20190927
  Transmission Date: 20191005
  Serious: Yes (Other)
  Sender: FDA-Public Use
  Company Number: BE-AUROBINDO-AUR-APL-2019-057241

PATIENT
  Age: 44 Year
  Sex: Female
  Weight: 70 kg

DRUGS (4)
  1. TRAZODON [Interacting]
     Active Substance: TRAZODONE HYDROCHLORIDE
     Indication: INSOMNIA
     Dosage: 0.5 DOSAGE FORM, ONCE A DAY, THE EVENING
     Route: 048
     Dates: start: 20190620
  2. ALPRAZOLAM. [Concomitant]
     Active Substance: ALPRAZOLAM
     Indication: ANXIETY
     Dosage: 1 DOSAGE FORM, ONCE A DAY
     Route: 048
     Dates: start: 20190704
  3. PAROXETINE 20 MG FILM-COATED TABLETS [Suspect]
     Active Substance: PAROXETINE
     Indication: POST-TRAUMATIC STRESS DISORDER
     Dosage: 1 DOSAGE FORM, ONCE A DAY, LE MATIN
     Route: 048
     Dates: start: 20190620, end: 20190729
  4. MOMETASONE [Concomitant]
     Active Substance: MOMETASONE
     Indication: RHINITIS
     Dosage: 2 DOSAGE FORM, ONCE A DAY (2 PUFF PAR NARINE 1X PAR JOUR)
     Route: 045
     Dates: start: 20190624

REACTIONS (3)
  - Drug interaction [Unknown]
  - Suicidal ideation [Unknown]
  - Negative thoughts [Unknown]
